FAERS Safety Report 9441802 (Version 2)
Quarter: 2013Q3

REPORT INFORMATION
  Report Type: Spontaneous
  Country: GB (occurrence: None)
  Receive Date: 20130801
  Receipt Date: 20130808
  Transmission Date: 20140515
  Serious: Yes (Other)
  Sender: FDA-Public Use
  Company Number: AUR-APL-2013-06208

PATIENT
  Age: 36 Year
  Sex: Female

DRUGS (6)
  1. OLANZAPINE [Suspect]
     Indication: SCHIZOPHRENIA
     Dosage: 15 MG ( 15 MG, 1 IN 1 D), UNKNOWN
  2. OMEPRAZOLE [Suspect]
     Indication: PRODUCT USED FOR UNKNOWN INDICATION
     Route: 048
  3. DIAZEPAM (DIAZEPAM) [Suspect]
     Indication: PRODUCT USED FOR UNKNOWN INDICATION
     Dosage: 20 MG ( 10 MG, 2 IN 1 D)
     Route: 048
  4. PREGABALIN [Suspect]
     Indication: PAIN IN EXTREMITY
     Dosage: 600 MG ( 300 MG, 2 IN 1 D)
     Route: 048
  5. SUBUTEX [Suspect]
     Indication: PRODUCT USED FOR UNKNOWN INDICATION
     Dosage: 14 MG ( 14 MG, 1 IN 1 D), SUBLINGUAL
     Route: 060
  6. ZOPICLONE [Suspect]
     Indication: PRODUCT USED FOR UNKNOWN INDICATION
     Dosage: 15 MG ( 15 MG, 1 IN 1 D), SUBLINGUAL
     Route: 048

REACTIONS (8)
  - Congenital scoliosis [None]
  - Foetal malformation [None]
  - Single functional kidney [None]
  - Limb reduction defect [None]
  - Oesophageal atresia [None]
  - Cardiac disorder [None]
  - Drug abuse [None]
  - Exposure during pregnancy [None]
